FAERS Safety Report 12454747 (Version 1)
Quarter: 2016Q2

REPORT INFORMATION
  Report Type: Spontaneous
  Country: BR (occurrence: BR)
  Receive Date: 20160610
  Receipt Date: 20160610
  Transmission Date: 20160815
  Serious: Yes (Death, Congenital Anomaly, Other)
  Sender: FDA-Public Use
  Company Number: BR-009507513-1606BRA003969

PATIENT
  Age: 1 Day
  Sex: Male

DRUGS (1)
  1. MICRODIOL [Suspect]
     Active Substance: DESOGESTREL\ETHINYL ESTRADIOL
     Route: 064

REACTIONS (6)
  - Maternal drugs affecting foetus [Unknown]
  - Respiratory disorder [Fatal]
  - Premature baby [Unknown]
  - Congenital pneumonia [Unknown]
  - Trisomy 21 [Unknown]
  - Pneumonia [Fatal]

NARRATIVE: CASE EVENT DATE: 20141019
